FAERS Safety Report 18079465 (Version 1)
Quarter: 2020Q3

REPORT INFORMATION
  Report Type: Spontaneous
  Country: CL (occurrence: CL)
  Receive Date: 20200727
  Receipt Date: 20200727
  Transmission Date: 20201103
  Serious: Yes (Hospitalization, Disabling, Other)
  Sender: FDA-Public Use
  Company Number: None

PATIENT
  Age: 20 Year
  Sex: Female
  Weight: 55 kg

DRUGS (2)
  1. BELIMUMAB [Suspect]
     Active Substance: BELIMUMAB
     Indication: SYSTEMIC LUPUS ERYTHEMATOSUS
     Dates: start: 20200412, end: 20200615
  2. BELIMUMAB [Concomitant]
     Active Substance: BELIMUMAB
     Dates: start: 20200412, end: 20200712

REACTIONS (1)
  - Depression [None]

NARRATIVE: CASE EVENT DATE: 20200720
